FAERS Safety Report 5912298-9 (Version None)
Quarter: 2008Q4

REPORT INFORMATION
  Report Type: 
  Country: None (occurrence: None)
  Receive Date: 20081008
  Receipt Date: 20080928
  Transmission Date: 20090506
  Serious: Yes (Hospitalization)
  Sender: FDA-Public Use
  Company Number: GB-ROCHE-588482

PATIENT
  Sex: Male
  Weight: 128.3 kg

DRUGS (7)
  1. ORLISTAT [Suspect]
     Indication: OBESITY
     Route: 048
     Dates: start: 20080511
  2. SIMVASTATIN [Concomitant]
     Route: 048
  3. ASPIRIN [Concomitant]
     Dosage: INDICATION: BLOODS
     Route: 048
     Dates: end: 20080926
  4. DOXAZOSIN MESYLATE [Concomitant]
     Route: 048
  5. FRUSEMIDE [Concomitant]
     Dosage: INDICATION: WATER
     Route: 048
  6. ROSIGLITAZONE [Concomitant]
     Dosage: REPORTED AS ROSISLITAZONE
     Route: 048
  7. GLICLAZIDE [Concomitant]
     Dosage: REPORTED AS GLICAZIDE
     Route: 048

REACTIONS (1)
  - SLEEP APNOEA SYNDROME [None]
